FAERS Safety Report 5603697-3 (Version None)
Quarter: 2008Q1

REPORT INFORMATION
  Report Type: 
  Country: None (occurrence: None)
  Receive Date: 20080128
  Receipt Date: 20080103
  Transmission Date: 20080703
  Serious: Yes (Disabling, Other)
  Sender: FDA-Public Use
  Company Number: NL-BAYER-NL-2006-022873

PATIENT
  Age: 34 Year
  Sex: Female
  Weight: 43 kg

DRUGS (14)
  1. MAGNEVIST [Suspect]
     Indication: ANGIOGRAM
     Route: 042
     Dates: start: 20040401
  2. OMNISCAN [Suspect]
     Indication: SURGICAL VASCULAR SHUNT
     Route: 065
  3. VENOFER [Concomitant]
     Dosage: UNIT DOSE: 100 MG
     Dates: start: 20010223
  4. ETALPHA [Concomitant]
     Dosage: UNIT DOSE: 0.25 ?G
     Dates: start: 20060718
  5. RENAGEL [Concomitant]
     Dosage: UNIT DOSE: 1600 MG
     Dates: start: 20060718
  6. BRUFEN [Concomitant]
     Dosage: UNIT DOSE: 400 MG
     Dates: start: 20060621
  7. DURAGESIC-100 [Concomitant]
     Route: 062
     Dates: start: 20060510
  8. VALIUM [Concomitant]
     Dosage: UNIT DOSE: 5 MG
     Route: 048
     Dates: start: 20060510
  9. IMODIUM [Concomitant]
     Route: 048
     Dates: start: 20060227
  10. PANTOZOL [Concomitant]
     Dosage: UNIT DOSE: 40 MG
     Route: 048
     Dates: start: 20050829
  11. PLAVIX [Concomitant]
     Dosage: UNIT DOSE: 75 MG
     Route: 048
     Dates: start: 20030709
  12. SORBISTERIL [Concomitant]
     Dates: start: 20020403
  13. ARANESP [Concomitant]
     Dosage: UNIT DOSE: 30 ?G
     Dates: start: 20021227
  14. FRAXIPARIN [Concomitant]
     Dates: start: 20010312

REACTIONS (3)
  - JOINT CONTRACTURE [None]
  - SKIN HYPERTROPHY [None]
  - SKIN INDURATION [None]
